FAERS Safety Report 7199378-8 (Version None)
Quarter: 2010Q4

REPORT INFORMATION
  Report Type: 
  Country: None (occurrence: None)
  Receive Date: 20101223
  Receipt Date: 20101223
  Transmission Date: 20110411
  Serious: Yes (Hospitalization)
  Sender: FDA-Public Use
  Company Number: None

PATIENT
  Age: 63 Year
  Sex: Male
  Weight: 89 kg

DRUGS (2)
  1. DIVALPROEX SODIUM [Suspect]
     Indication: BIPOLAR DISORDER
     Dosage: 1000 MG BID PO
     Route: 048
     Dates: start: 20101020, end: 20101210
  2. DIVALPROEX SODIUM [Suspect]
     Dosage: 750 MG EVERY DAY PO
     Route: 048
     Dates: start: 20080828, end: 20101020

REACTIONS (5)
  - ANAEMIA [None]
  - LEUKOPENIA [None]
  - MACROCYTOSIS [None]
  - NEUTROPENIA [None]
  - THROMBOCYTOPENIA [None]
